FAERS Safety Report 18922952 (Version 2)
Quarter: 2021Q1

REPORT INFORMATION
  Report Type: Spontaneous
  Country: US (occurrence: US)
  Receive Date: 20210222
  Receipt Date: 20210227
  Transmission Date: 20210420
  Serious: Yes (Other)
  Sender: FDA-Public Use
  Company Number: US-ABBVIE-21K-163-3780126-00

PATIENT
  Age: 59 Year
  Sex: Female
  Weight: 68.1 kg

DRUGS (5)
  1. HUMIRA [Suspect]
     Active Substance: ADALIMUMAB
     Indication: PUSTULAR PSORIASIS
  2. HUMIRA [Suspect]
     Active Substance: ADALIMUMAB
     Indication: PSORIASIS
     Route: 058
     Dates: start: 202012
  3. TOPAMAX [Concomitant]
     Active Substance: TOPIRAMATE
     Indication: PRODUCT USED FOR UNKNOWN INDICATION
  4. MAXALT [Concomitant]
     Active Substance: RIZATRIPTAN BENZOATE
     Indication: MIGRAINE
  5. HUMIRA [Suspect]
     Active Substance: ADALIMUMAB
     Indication: FIBROMYALGIA
     Route: 058

REACTIONS (19)
  - Loss of consciousness [Recovered/Resolved]
  - Wrong technique in product usage process [Unknown]
  - Insomnia [Not Recovered/Not Resolved]
  - Pruritus [Recovering/Resolving]
  - Arthralgia [Not Recovered/Not Resolved]
  - Contusion [Recovered/Resolved]
  - Device issue [Recovered/Resolved]
  - Blood pressure increased [Recovered/Resolved]
  - Fall [Unknown]
  - Vomiting [Recovered/Resolved]
  - Skin exfoliation [Recovered/Resolved]
  - Hypoglycaemia [Recovered/Resolved]
  - Food poisoning [Unknown]
  - Migraine [Not Recovered/Not Resolved]
  - Gait disturbance [Recovered/Resolved]
  - Concussion [Recovered/Resolved]
  - Blister [Recovering/Resolving]
  - Adverse reaction [Unknown]
  - Diarrhoea [Recovered/Resolved]

NARRATIVE: CASE EVENT DATE: 202004
